FAERS Safety Report 5022231-2 (Version None)
Quarter: 2006Q2

REPORT INFORMATION
  Report Type: 
  Country: None (occurrence: None)
  Receive Date: 20060609
  Receipt Date: 20060605
  Transmission Date: 20061013
  Serious: Yes (Other)
  Sender: FDA-Public Use
  Company Number: PHEH2006US07288

PATIENT
  Age: 72 Year
  Sex: Female

DRUGS (1)
  1. EXJADE [Suspect]
     Indication: BLOOD IRON INCREASED
     Dosage: 2000 MG, QD
     Route: 048
     Dates: start: 20060515

REACTIONS (2)
  - PLATELET COUNT DECREASED [None]
  - RECTAL HAEMORRHAGE [None]
